FAERS Safety Report 13825393 (Version 3)
Quarter: 2017Q3

REPORT INFORMATION
  Report Type: Report from Study
  Country: US (occurrence: US)
  Receive Date: 20170802
  Receipt Date: 20170823
  Transmission Date: 20171127
  Serious: Yes (Hospitalization, Other)
  Sender: FDA-Public Use
  Company Number: US-GILEAD-2017-0286070

PATIENT
  Age: 43 Year
  Sex: Female

DRUGS (17)
  1. METOPROLOL. [Concomitant]
     Active Substance: METOPROLOL
  2. SERTRALINE [Concomitant]
     Active Substance: SERTRALINE HYDROCHLORIDE
  3. AMLODIPINE [Concomitant]
     Active Substance: AMLODIPINE BESYLATE
  4. NEXIUM [Concomitant]
     Active Substance: ESOMEPRAZOLE MAGNESIUM
  5. HYDROXYCHLOROQUINE [Concomitant]
     Active Substance: HYDROXYCHLOROQUINE
  6. PREDNISONE. [Concomitant]
     Active Substance: PREDNISONE
  7. AMBRISENTAN [Suspect]
     Active Substance: AMBRISENTAN
     Indication: PRODUCT USED FOR UNKNOWN INDICATION
     Dosage: 10 MG, QD
     Route: 065
  8. NALOXONE [Concomitant]
     Active Substance: NALOXONE
  9. PROAIR HFA [Concomitant]
     Active Substance: ALBUTEROL SULFATE
  10. GABAPENTIN. [Concomitant]
     Active Substance: GABAPENTIN
  11. SEVELAMER [Concomitant]
     Active Substance: SEVELAMER
  12. UPTRAVI [Concomitant]
     Active Substance: SELEXIPAG
  13. CLONIDINE. [Concomitant]
     Active Substance: CLONIDINE
  14. SELEXIPAG [Concomitant]
     Active Substance: SELEXIPAG
  15. WARFARIN [Concomitant]
     Active Substance: WARFARIN
  16. ASA [Concomitant]
     Active Substance: ASPIRIN
  17. SENSIPAR [Concomitant]
     Active Substance: CINACALCET HYDROCHLORIDE

REACTIONS (2)
  - Localised infection [Unknown]
  - Finger amputation [Recovered/Resolved]
